FAERS Safety Report 7801863-X (Version None)
Quarter: 2011Q4

REPORT INFORMATION
  Report Type: 
  Country: None (occurrence: None)
  Receive Date: 20111007
  Receipt Date: 20110930
  Transmission Date: 20120403
  Serious: Yes (Other)
  Sender: FDA-Public Use
  Company Number: AU-B.I. PHARMACEUTICALS,INC./RIDGEFIELD-2011-AU-01685AU

PATIENT
  Age: 34 Year
  Sex: Female

DRUGS (1)
  1. PRADAXA [Suspect]

REACTIONS (4)
  - GLOMERULAR FILTRATION RATE DECREASED [None]
  - ABDOMINAL PAIN [None]
  - CHOLESTASIS [None]
  - BLOOD LACTIC ACID INCREASED [None]
